FAERS Safety Report 9090622 (Version 1)
Quarter: 2013Q1

REPORT INFORMATION
  Report Type: Spontaneous
  Country: US (occurrence: US)
  Receive Date: 20130218
  Receipt Date: 20130218
  Transmission Date: 20140127
  Serious: No
  Sender: FDA-Public Use
  Company Number: US-ABBOTT-12P-163-0912291-00

PATIENT
  Sex: Female
  Weight: 113.5 kg

DRUGS (6)
  1. SIMCOR [Suspect]
     Indication: BLOOD CHOLESTEROL INCREASED
     Dosage: 500/20 MILLIGRAMS
     Dates: start: 201006, end: 201112
  2. SIMCOR [Suspect]
     Dosage: 500/20 MILLIGRAMS
     Dates: start: 201112
  3. LEVOTHYROXINE [Concomitant]
     Indication: HYPOTHYROIDISM
  4. HYDROCHLOROTHIAZIDE [Concomitant]
     Indication: FLUID RETENTION
  5. OMEPRAZOLE [Concomitant]
     Indication: GASTROOESOPHAGEAL REFLUX DISEASE
  6. POTASSIUM [Concomitant]
     Indication: MINERAL SUPPLEMENTATION

REACTIONS (1)
  - Medication residue present [Not Recovered/Not Resolved]
